FAERS Safety Report 4289504-2 (Version None)
Quarter: 2004Q1

REPORT INFORMATION
  Report Type: 
  Country: None (occurrence: None)
  Receive Date: 20040205
  Receipt Date: 20040127
  Transmission Date: 20041129
  Serious: Yes (Death, Life-Threatening)
  Sender: FDA-Public Use
  Company Number: 200410328FR

PATIENT
  Age: 55 Year
  Sex: Male
  Weight: 79 kg

DRUGS (9)
  1. GLIBENCLAMIDE (DAONIL) TABLETS [Suspect]
     Indication: DIABETES MELLITUS NON-INSULIN-DEPENDENT
     Dosage: 15 MG/DAY PO
     Route: 048
  2. FUROSEMIDE [Suspect]
     Dosage: 40 MG/DAY PO
     Route: 048
  3. ALDACTONE [Suspect]
     Dosage: 1 U/DAY PO
  4. METFORMIN EMBONATE (STAGID) TABLETS [Suspect]
     Dosage: 2100 MG/DAY PO
     Route: 048
  5. ACARBOSE (GLUCOR) TABLETS [Suspect]
     Dosage: 150 MG/DAY PO
     Route: 048
  6. LOPRAZOLAM MESILATE (HAVLANE) [Concomitant]
  7. ACAMPROSATE (AOTAL) [Concomitant]
  8. EQUANIL [Concomitant]
  9. PROZAC [Concomitant]

REACTIONS (1)
  - LACTIC ACIDOSIS [None]
